FAERS Safety Report 7410635-X (Version None)
Quarter: 2011Q2

REPORT INFORMATION
  Report Type: 
  Country: None (occurrence: None)
  Receive Date: 20110413
  Receipt Date: 20110330
  Transmission Date: 20111010
  Serious: Yes (Life-Threatening, Hospitalization)
  Sender: FDA-Public Use
  Company Number: IE-CELGENEUS-229-21880-11033610

PATIENT
  Sex: Male
  Weight: 73 kg

DRUGS (9)
  1. ATORVASTATIN [Concomitant]
     Dosage: 10 MILLIGRAM
     Route: 065
  2. SPIRONOLACTONE [Concomitant]
     Indication: HYPERTENSION
     Dosage: 50 MILLIGRAM
     Route: 065
  3. VERAPAMIL [Suspect]
     Indication: ATRIAL FIBRILLATION
     Dosage: 240 MILLIGRAM
     Route: 065
     Dates: end: 20110305
  4. PANTOPRAZOLE [Concomitant]
     Dosage: 20-40 MG
     Route: 065
  5. PERINDOPRIL ERBUMINE [Concomitant]
     Indication: HYPERTENSION
     Dosage: 2.5 MILLIGRAM
     Route: 065
  6. TOLTERODINE [Suspect]
     Indication: URINARY INCONTINENCE
     Dosage: 8 MILLIGRAM
     Route: 065
     Dates: end: 20110305
  7. FILGRASTIM [Concomitant]
     Dosage: 30 MICROGRAM
     Route: 065
     Dates: start: 20110215, end: 20110322
  8. REVLIMID [Suspect]
     Dosage: 10 MILLIGRAM
     Route: 048
     Dates: start: 20110201, end: 20110305
  9. WARFARIN [Concomitant]
     Indication: ATRIAL FIBRILLATION
     Route: 065

REACTIONS (1)
  - BRADYCARDIA [None]
